FAERS Safety Report 4872781-4 (Version None)
Quarter: 2006Q1

REPORT INFORMATION
  Report Type: 
  Country: None (occurrence: None)
  Receive Date: 20060103
  Receipt Date: 20051219
  Transmission Date: 20060701
  Serious: Yes (Hospitalization)
  Sender: FDA-Public Use
  Company Number: 200512IM000845

PATIENT
  Age: 63 Year
  Sex: Female

DRUGS (4)
  1. INFERGEN [Suspect]
     Indication: HEPATITIS C
     Dosage: 15 UG, QD, SUBCUTANEOUS
     Route: 058
     Dates: start: 20050907, end: 20051017
  2. RIBAVIRIN [Concomitant]
  3. DIOVAN [Concomitant]
  4. PLAVIX [Concomitant]

REACTIONS (4)
  - CARDIAC STRESS TEST ABNORMAL [None]
  - DYSPNOEA [None]
  - FATIGUE [None]
  - HAEMOGLOBIN DECREASED [None]
